FAERS Safety Report 8202128-7 (Version None)
Quarter: 2012Q1

REPORT INFORMATION
  Report Type: 
  Country: None (occurrence: None)
  Receive Date: 20120312
  Receipt Date: 20120302
  Transmission Date: 20120608
  Serious: Yes (Death, Hospitalization)
  Sender: FDA-Public Use
  Company Number: US-BAYER-2011-076849

PATIENT
  Age: 40 Year
  Sex: Female
  Weight: 59 kg

DRUGS (9)
  1. BICARBONAT [Concomitant]
  2. SYMBICORT [Concomitant]
     Indication: WHEEZING
  3. AMITRIPTYLINE HCL [Concomitant]
  4. NADOLOL [Concomitant]
     Dosage: 40 MG, QD
     Route: 048
  5. YASMIN [Suspect]
     Indication: CONTRACEPTION
     Dosage: UNK
     Dates: start: 20070626, end: 20081015
  6. DROSPIRENONE AND ETHINYL ESTRADIOL [Suspect]
     Indication: CONTRACEPTION
     Dosage: UNK
     Dates: start: 20081115, end: 20091108
  7. ATIVAN [Concomitant]
     Indication: ANXIETY
     Dosage: 0.5 MG, QID PRN
     Route: 048
     Dates: start: 20091106
  8. TOPROL-XL [Concomitant]
     Dosage: 20 MG, QD
     Route: 048
     Dates: start: 20091106
  9. RELPAX [Concomitant]
     Dosage: UNK
     Route: 048
     Dates: start: 20090112, end: 20091013

REACTIONS (6)
  - PAIN [None]
  - WHEEZING [None]
  - SYNCOPE [None]
  - PULMONARY EMBOLISM [None]
  - DIZZINESS [None]
  - DYSPNOEA [None]
